FAERS Safety Report 5940425-6 (Version None)
Quarter: 2008Q4

REPORT INFORMATION
  Report Type: 
  Country: None (occurrence: None)
  Receive Date: 20081104
  Receipt Date: 20081020
  Transmission Date: 20090506
  Serious: Yes (Hospitalization)
  Sender: FDA-Public Use
  Company Number: JP-GENENTECH-270554

PATIENT
  Sex: Male

DRUGS (6)
  1. BLINDED BEVACIZUMAB [Suspect]
     Indication: GASTRIC CANCER
     Dosage: UNK
     Route: 042
  2. BLINDED CAPECITABINE [Suspect]
     Indication: GASTRIC CANCER
     Dosage: UNK
     Route: 042
  3. BLINDED CISPLATIN [Suspect]
     Indication: GASTRIC CANCER
     Dosage: UNK
     Route: 042
  4. BLINDED PLACEBO [Suspect]
     Indication: GASTRIC CANCER
     Dosage: UNK
     Route: 042
  5. CAPECITABINE [Suspect]
     Indication: GASTRIC CANCER
     Dosage: 2000 MG/M2, UNK
     Route: 048
     Dates: end: 20081014
  6. CISPLATIN [Suspect]
     Indication: GASTRIC CANCER
     Dosage: 80 MG/M2, Q3W
     Route: 042

REACTIONS (1)
  - PYREXIA [None]
